FAERS Safety Report 8513274-2 (Version None)
Quarter: 2012Q3

REPORT INFORMATION
  Report Type: 
  Country: None (occurrence: None)
  Receive Date: 20120716
  Receipt Date: 20120705
  Transmission Date: 20120928
  Serious: Yes (Hospitalization)
  Sender: FDA-Public Use
  Company Number: US-ABBOTT-12P-163-0956250-00

PATIENT
  Age: 55 Year
  Sex: Male

DRUGS (2)
  1. ASACOL [Concomitant]
     Indication: COLITIS ULCERATIVE
     Route: 048
     Dates: start: 20020101
  2. SFROWASA [Suspect]
     Indication: COLITIS ULCERATIVE
     Dosage: 4G/60ML
     Route: 054
     Dates: start: 20020101

REACTIONS (3)
  - MUSCULOSKELETAL PAIN [None]
  - ROTATOR CUFF SYNDROME [None]
  - WRONG TECHNIQUE IN DRUG USAGE PROCESS [None]
